FAERS Safety Report 22332302 (Version 3)
Quarter: 2023Q2

REPORT INFORMATION
  Report Type: Spontaneous
  Country: GB (occurrence: GB)
  Receive Date: 20230517
  Receipt Date: 20230630
  Transmission Date: 20230721
  Serious: Yes (Hospitalization)
  Sender: FDA-Public Use
  Company Number: GB-PFIZER INC-PV202300084714

PATIENT
  Age: 69 Year
  Sex: Female
  Weight: 95.238 kg

DRUGS (1)
  1. GENOTROPIN [Suspect]
     Active Substance: SOMATROPIN
     Dosage: 0.6 MG, DAILY
     Route: 058

REACTIONS (4)
  - Transient ischaemic attack [Unknown]
  - Fall [Unknown]
  - Device delivery system issue [Unknown]
  - Drug dose omission by device [Unknown]
